FAERS Safety Report 16229359 (Version 1)
Quarter: 2019Q2

REPORT INFORMATION
  Report Type: Spontaneous
  Country: US (occurrence: US)
  Receive Date: 20190423
  Receipt Date: 20190423
  Transmission Date: 20190711
  Serious: Yes (Other)
  Sender: FDA-Public Use
  Company Number: US-ALLERGAN-1917111US

PATIENT
  Sex: Female

DRUGS (6)
  1. LINZESS [Concomitant]
     Active Substance: LINACLOTIDE
  2. METHADONE [Concomitant]
     Active Substance: METHADONE HYDROCHLORIDE
     Dosage: TAPERED DOWN FROM 30 MG
     Dates: end: 201903
  3. TOPAMAX [Concomitant]
     Active Substance: TOPIRAMATE
  4. BOTOX [Suspect]
     Active Substance: ONABOTULINUMTOXINA
     Dosage: 200 UNITS, SINGLE
     Route: 030
     Dates: start: 2005, end: 2005
  5. CELEBREX [Concomitant]
     Active Substance: CELECOXIB
  6. BOTOX [Suspect]
     Active Substance: ONABOTULINUMTOXINA
     Indication: MIGRAINE
     Dosage: 200 UNITS, SINGLE
     Route: 030
     Dates: start: 2018, end: 2018

REACTIONS (4)
  - Fall [Not Recovered/Not Resolved]
  - Device breakage [Unknown]
  - Brain oedema [Unknown]
  - Off label use [Unknown]

NARRATIVE: CASE EVENT DATE: 2018
